FAERS Safety Report 7545784-9 (Version None)
Quarter: 2011Q2

REPORT INFORMATION
  Report Type: 
  Country: None (occurrence: None)
  Receive Date: 20110613
  Receipt Date: 20110613
  Transmission Date: 20111010
  Serious: Yes (Other)
  Sender: FDA-Public Use
  Company Number: None

PATIENT
  Age: 28 Year
  Sex: Female
  Weight: 55.7924 kg

DRUGS (1)
  1. DROSPIRENONE AND ETHINYL ESTRADIOL [Suspect]
     Indication: CONTRACEPTION
     Dosage: GIANVI DAILY 3/ 0.02 TELA
     Dates: start: 20100614, end: 20100712

REACTIONS (4)
  - PRODUCT SUBSTITUTION ISSUE [None]
  - DEPRESSION [None]
  - MOOD SWINGS [None]
  - IRRITABILITY [None]
